FAERS Safety Report 13553723 (Version 1)
Quarter: 2017Q2

REPORT INFORMATION
  Report Type: Report from Study
  Country: BR (occurrence: BR)
  Receive Date: 20170517
  Receipt Date: 20170517
  Transmission Date: 20170830
  Serious: Yes (Other)
  Sender: FDA-Public Use
  Company Number: ALCN2017BR003346

PATIENT
  Age: 56 Year
  Sex: Female
  Weight: 64 kg

DRUGS (2)
  1. VITALUX PLUS [Suspect]
     Active Substance: VITAMINS
     Indication: MACULOPATHY
     Dosage: UNK UNK, QD
     Route: 048
     Dates: start: 201703
  2. VITALUX [Concomitant]
     Active Substance: MINERALS\VITAMINS
     Indication: MACULOPATHY
     Dosage: UNK UNK, QD
     Route: 048
     Dates: end: 2014

REACTIONS (1)
  - Haemorrhage [Not Recovered/Not Resolved]

NARRATIVE: CASE EVENT DATE: 20170320
